FAERS Safety Report 8496397-6 (Version None)
Quarter: 2012Q2

REPORT INFORMATION
  Report Type: 
  Country: None (occurrence: None)
  Receive Date: 20120405
  Receipt Date: 20100414
  Transmission Date: 20120825
  Serious: Yes (Other)
  Sender: FDA-Public Use
  Company Number: PHHY2010US23854

PATIENT
  Age: 79 Year
  Sex: Female

DRUGS (8)
  1. POTASSIUM CHLORIDE [Concomitant]
  2. RECLAST [Suspect]
     Indication: OSTEOPOROSIS
     Dosage: 5MG/100ML PER YEAR, INTRAVENOUS
     Route: 042
     Dates: start: 20091118
  3. RECLAST [Suspect]
     Indication: OSTEOPOROSIS
     Dosage: 5MG/100ML PER YEAR, INTRAVENOUS
     Route: 042
     Dates: start: 20081101
  4. FOLIC ACID [Concomitant]
  5. DIOVAN [Concomitant]
  6. DARVOCET-N (DEXTROPROPOXYPHENE NAPSILATE, PARACETAMOL) [Concomitant]
  7. TRAMADOL HCL [Concomitant]
  8. PRAVACHOL [Concomitant]

REACTIONS (3)
  - GLOMERULAR FILTRATION RATE DECREASED [None]
  - RENAL FAILURE [None]
  - BLOOD CREATININE INCREASED [None]
